FAERS Safety Report 12859922 (Version 1)
Quarter: 2016Q4

REPORT INFORMATION
  Report Type: Spontaneous
  Country: US (occurrence: US)
  Receive Date: 20161018
  Receipt Date: 20161018
  Transmission Date: 20170207
  Serious: No
  Sender: FDA-Public Use
  Company Number: GXBR2013US001076

PATIENT
  Age: 25 Year
  Sex: Female

DRUGS (2)
  1. INFUVITE ADULT [Suspect]
     Active Substance: .ALPHA.-TOCOPHEROL ACETATE\ASCORBIC ACID\BIOTIN\CHOLECALCIFEROL\CYANOCOBALAMIN\DEXPANTHENOL\FOLIC ACID\NIACINAMIDE\PHYTONADIONE\PYRIDOXINE HYDROCHLORIDE\RIBOFLAVIN 5^-PHOSPHATE SODIUM\THIAMINE HYDROCHLORIDE\VITAMIN A PALMITATE
     Dosage: UNK DF, UNK
     Route: 042
  2. PRENATAL VITAMINS [Concomitant]
     Active Substance: VITAMINS
     Indication: VITAMIN SUPPLEMENTATION
     Dosage: UNK DF, UNK

REACTIONS (4)
  - Maternal exposure during pregnancy [Unknown]
  - Tachycardia [Unknown]
  - Wrong technique in product usage process [Unknown]
  - Chest discomfort [Unknown]

NARRATIVE: CASE EVENT DATE: 20130509
